FAERS Safety Report 15953453 (Version 2)
Quarter: 2019Q1

REPORT INFORMATION
  Report Type: Spontaneous
  Country: CH (occurrence: CH)
  Receive Date: 20190213
  Receipt Date: 20190313
  Transmission Date: 20190417
  Serious: Yes (Hospitalization, Other)
  Sender: FDA-Public Use
  Company Number: CH-AMGEN-CHESP2019019596

PATIENT
  Age: 75 Year
  Sex: Male
  Weight: 65 kg

DRUGS (8)
  1. PROLIA [Suspect]
     Active Substance: DENOSUMAB
     Indication: OSTEOPOROSIS
     Dosage: 60 MILLIGRAM
     Route: 058
     Dates: start: 20160503
  2. PERINDOPRIL [Suspect]
     Active Substance: PERINDOPRIL
     Indication: PRODUCT USED FOR UNKNOWN INDICATION
     Dosage: UNK
     Route: 065
  3. AMLODIPINE [Concomitant]
     Active Substance: AMLODIPINE BESYLATE
  4. TORASEMIDE [Concomitant]
     Active Substance: TORSEMIDE
     Dosage: UNK
  5. RITUXIMAB. [Suspect]
     Active Substance: RITUXIMAB
     Indication: PRODUCT USED FOR UNKNOWN INDICATION
     Dosage: UNK
     Route: 065
  6. PANTOZOL [Concomitant]
     Active Substance: PANTOPRAZOLE SODIUM
     Dosage: UNK
  7. EZETROL [Concomitant]
     Active Substance: EZETIMIBE
  8. ALLOPURINOL. [Concomitant]
     Active Substance: ALLOPURINOL
     Dosage: UNK

REACTIONS (18)
  - Hyperparathyroidism [Recovered/Resolved]
  - Hypertensive heart disease [Unknown]
  - Rales [Unknown]
  - Hypomagnesaemia [Unknown]
  - Carotid bruit [Unknown]
  - B-cell lymphoma [Unknown]
  - Haematuria [Unknown]
  - Arrhythmia [Unknown]
  - Pancytopenia [Unknown]
  - Agranulocytosis [Unknown]
  - Hypophosphataemia [Unknown]
  - Myocardial ischaemia [Unknown]
  - Hypercalcaemia [Unknown]
  - Eosinophilic colitis [Unknown]
  - Duodenitis [Unknown]
  - Hypocalcaemia [Unknown]
  - Herpes zoster [Unknown]
  - Aortic bruit [Unknown]

NARRATIVE: CASE EVENT DATE: 20170816
